FAERS Safety Report 12001136 (Version 1)
Quarter: 2016Q1

REPORT INFORMATION
  Report Type: Spontaneous
  Country: US (occurrence: US)
  Receive Date: 20160204
  Receipt Date: 20160204
  Transmission Date: 20160526
  Serious: No
  Sender: FDA-Public Use
  Company Number: US-ELI_LILLY_AND_COMPANY-US201601004890

PATIENT
  Sex: Male

DRUGS (1)
  1. EFFIENT [Suspect]
     Active Substance: PRASUGREL HYDROCHLORIDE
     Indication: STENT PLACEMENT
     Dosage: 10 MG, QD
     Dates: start: 201407

REACTIONS (5)
  - Weight increased [Not Recovered/Not Resolved]
  - Incorrect product storage [Unknown]
  - Abdominal distension [Not Recovered/Not Resolved]
  - Sleep apnoea syndrome [Unknown]
  - Infusion site infection [Recovered/Resolved]
